FAERS Safety Report 10178725 (Version 2)
Quarter: 2014Q2

REPORT INFORMATION
  Report Type: Spontaneous
  Country: BR (occurrence: BR)
  Receive Date: 20140519
  Receipt Date: 20140613
  Transmission Date: 20141212
  Serious: Yes (Hospitalization)
  Sender: FDA-Public Use
  Company Number: BR-BIOGENIDEC-2014BI046208

PATIENT
  Age: 31 Year
  Sex: Male

DRUGS (5)
  1. AVONEX [Suspect]
     Indication: MULTIPLE SCLEROSIS
     Route: 030
     Dates: start: 20090920, end: 20121104
  2. AVONEX [Suspect]
     Indication: MULTIPLE SCLEROSIS
     Route: 030
     Dates: start: 20121111, end: 20140504
  3. ADEROGIL (RETINOL ACETATE/VITAMIN A) [Concomitant]
     Indication: VITAMIN SUPPLEMENTATION
  4. CHOLECALCIFEROL [Concomitant]
     Indication: VITAMIN SUPPLEMENTATION
  5. DALSY [Concomitant]
     Indication: PREMEDICATION

REACTIONS (3)
  - Optic neuritis [Not Recovered/Not Resolved]
  - Blood cholesterol increased [Not Recovered/Not Resolved]
  - Hepatic steatosis [Not Recovered/Not Resolved]
